FAERS Safety Report 15126385 (Version 1)
Quarter: 2018Q3

REPORT INFORMATION
  Report Type: Spontaneous
  Country: US (occurrence: US)
  Receive Date: 20180710
  Receipt Date: 20180710
  Transmission Date: 20181010
  Serious: Yes (Death)
  Sender: FDA-Public Use
  Company Number: US-JNJFOC-20180710289

PATIENT
  Age: 67 Year
  Sex: Male

DRUGS (7)
  1. IMBRUVICA [Suspect]
     Active Substance: IBRUTINIB
     Indication: CHRONIC LYMPHOCYTIC LEUKAEMIA
     Route: 048
     Dates: start: 20160906, end: 20180530
  2. ACYCLOVIR. [Concomitant]
     Active Substance: ACYCLOVIR
  3. SILDENAFIL. [Concomitant]
     Active Substance: SILDENAFIL
  4. SAW PALMETTO [Concomitant]
     Active Substance: HERBALS\SAW PALMETTO
  5. GABAPENTIN. [Concomitant]
     Active Substance: GABAPENTIN
  6. IMBRUVICA [Suspect]
     Active Substance: IBRUTINIB
     Indication: CHRONIC LYMPHOCYTIC LEUKAEMIA
     Route: 048
     Dates: start: 20180531
  7. LISINOPRIL. [Concomitant]
     Active Substance: LISINOPRIL

REACTIONS (3)
  - Death [Fatal]
  - Off label use [Unknown]
  - Incorrect dose administered [Unknown]

NARRATIVE: CASE EVENT DATE: 20180531
